FAERS Safety Report 5221202-0 (Version None)
Quarter: 2007Q1

REPORT INFORMATION
  Report Type: 
  Country: None (occurrence: None)
  Receive Date: 20070126
  Receipt Date: 20060117
  Transmission Date: 20070707
  Serious: Yes (Hospitalization)
  Sender: FDA-Public Use
  Company Number: NL-BOEHRINGER INGELHEIM PHARMACEUTICALS, INC.-2007-NL-00027NL

PATIENT
  Sex: Male
  Weight: 78 kg

DRUGS (2)
  1. SPIRIVA [Suspect]
     Dates: end: 20061219
  2. SERETIDE [Concomitant]
     Indication: CHRONIC OBSTRUCTIVE PULMONARY DISEASE
     Dosage: STRENGTH: 50/500MCG  DAILY DOSE: 2PUFFS
     Route: 055
     Dates: start: 20060907

REACTIONS (2)
  - ATRIAL FIBRILLATION [None]
  - DYSPNOEA [None]
